FAERS Safety Report 18709521 (Version 1)
Quarter: 2021Q1

REPORT INFORMATION
  Report Type: Spontaneous
  Country: US (occurrence: US)
  Receive Date: 20210107
  Receipt Date: 20210107
  Transmission Date: 20210419
  Serious: Yes (Death, Hospitalization)
  Sender: FDA-Public Use
  Company Number: US-ALVOGEN-2021-ALVOGEN-115928

PATIENT
  Age: 54 Year
  Sex: Male

DRUGS (3)
  1. DIAMORPHINE [Suspect]
     Active Substance: DIAMORPHINE
     Indication: SUICIDE ATTEMPT
     Dosage: INGST+ UNK
  2. ALCOHOL. [Suspect]
     Active Substance: ALCOHOL
     Indication: SUICIDE ATTEMPT
     Dosage: INGST+ UNK
  3. FENTANYL. [Suspect]
     Active Substance: FENTANYL
     Indication: SUICIDE ATTEMPT
     Dosage: INGST+ UNK

REACTIONS (1)
  - Completed suicide [Fatal]
